FAERS Safety Report 16343495 (Version 1)
Quarter: 2019Q2

REPORT INFORMATION
  Report Type: Spontaneous
  Country: GB (occurrence: GB)
  Receive Date: 20190522
  Receipt Date: 20190522
  Transmission Date: 20190711
  Serious: Yes (Other)
  Sender: FDA-Public Use
  Company Number: GB-BAUSCH-BL-2019-014647

PATIENT
  Age: 52 Year
  Sex: Male

DRUGS (2)
  1. CYCLOPENTOLATE HYDROCHLORIDE. [Suspect]
     Active Substance: CYCLOPENTOLATE HYDROCHLORIDE
     Indication: PRODUCT USED FOR UNKNOWN INDICATION
     Route: 047
     Dates: start: 20190423, end: 20190423
  2. PHENYTOIN SODIUM. [Concomitant]
     Active Substance: PHENYTOIN SODIUM
     Indication: ILL-DEFINED DISORDER

REACTIONS (3)
  - Vision blurred [Not Recovered/Not Resolved]
  - Mydriasis [Not Recovered/Not Resolved]
  - Eye pain [Not Recovered/Not Resolved]

NARRATIVE: CASE EVENT DATE: 20190423
